FAERS Safety Report 11977203 (Version 1)
Quarter: 2016Q1

REPORT INFORMATION
  Report Type: Spontaneous
  Country: ES (occurrence: ES)
  Receive Date: 20160129
  Receipt Date: 20160129
  Transmission Date: 20160526
  Serious: Yes (Other)
  Sender: FDA-Public Use
  Company Number: PHHY2016ES009081

PATIENT
  Age: 45 Year
  Sex: Male

DRUGS (6)
  1. PREDNISONE. [Suspect]
     Active Substance: PREDNISONE
     Indication: BEHCET^S SYNDROME
     Dosage: 5-60 MG/DAY
     Route: 065
  2. PREDNISONE. [Suspect]
     Active Substance: PREDNISONE
     Dosage: 5 MG, QD
     Route: 065
  3. CYCLOSPORINE. [Concomitant]
     Active Substance: CYCLOSPORINE
     Indication: BEHCET^S SYNDROME
     Dosage: 200 MG, QD
     Route: 048
  4. RITUXIMAB [Concomitant]
     Active Substance: RITUXIMAB
     Indication: BEHCET^S SYNDROME
     Dosage: 1000 MG EOW? 2
     Route: 065
  5. PREDNISONE. [Suspect]
     Active Substance: PREDNISONE
     Dosage: 2.5 MG, EOD
     Route: 065
  6. RITUXIMAB [Concomitant]
     Active Substance: RITUXIMAB
     Dosage: NEW CYCLE
     Route: 065

REACTIONS (2)
  - Vitritis [Recovered/Resolved]
  - Retinal detachment [Recovered/Resolved]
